FAERS Safety Report 9230999 (Version 1)
Quarter: 2013Q2

REPORT INFORMATION
  Report Type: Spontaneous
  Country: GB (occurrence: GB)
  Receive Date: 20130415
  Receipt Date: 20130415
  Transmission Date: 20140414
  Serious: Yes (Hospitalization)
  Sender: FDA-Public Use
  Company Number: GB-BAYER-2013-046552

PATIENT
  Age: 84 Year
  Sex: Female

DRUGS (10)
  1. ACETYLSALICYLIC ACID({=100 MG) [Suspect]
     Dosage: 75 MG, QD
  2. ALENDRONIC ACID [Suspect]
     Dosage: 70 MG, QD
  3. LANSOPRAZOLE [Concomitant]
     Dosage: 15 MG, QD
  4. ATENOLOL [Concomitant]
     Dosage: 25 MG, QD
  5. ATORVASTATIN [Concomitant]
     Dosage: 20 MG, QD
  6. ADCAL D3 [Concomitant]
     Dosage: 1 TABLET TWICE DAILY
  7. PARACETAMOL [Concomitant]
     Dosage: 1 GRAMME FOUR TIMES DAILY
  8. TRAMADOL [Concomitant]
     Dosage: 50 MG, BID
  9. LINEZOLID [Concomitant]
     Indication: DEVICE RELATED INFECTION
     Dosage: 600 MG, UNK
     Route: 048
  10. METRONIDAZOLE [Concomitant]
     Indication: DEVICE RELATED INFECTION
     Dosage: 400 MG, BID
     Route: 048

REACTIONS (1)
  - Oesophagitis [None]
